FAERS Safety Report 9067834 (Version 1)
Quarter: 2013Q1

REPORT INFORMATION
  Report Type: Report from Study
  Country: FR (occurrence: FR)
  Receive Date: 20130128
  Receipt Date: 20130128
  Transmission Date: 20140127
  Serious: Yes (Life-Threatening)
  Sender: FDA-Public Use
  Company Number: FR-ROCHE-1182390

PATIENT
  Age: 82 Year
  Sex: Male
  Weight: 69 kg

DRUGS (6)
  1. BEVACIZUMAB [Suspect]
     Indication: BRAIN NEOPLASM MALIGNANT
     Route: 065
     Dates: start: 20110506
  2. BEVACIZUMAB [Suspect]
     Route: 065
     Dates: start: 20110715
  3. TEMOZOLOMIDE [Suspect]
     Indication: BRAIN NEOPLASM MALIGNANT
     Route: 048
     Dates: start: 20110506
  4. KEPPRA [Concomitant]
     Indication: EPILEPSY
     Route: 048
     Dates: start: 201103
  5. MEDROL [Concomitant]
     Route: 048
     Dates: start: 201104
  6. PRETERAX [Concomitant]
     Route: 048

REACTIONS (2)
  - Phlebitis [Not Recovered/Not Resolved]
  - Oedema peripheral [Not Recovered/Not Resolved]
